FAERS Safety Report 6078399-2 (Version None)
Quarter: 2009Q1

REPORT INFORMATION
  Report Type: 
  Country: None (occurrence: None)
  Receive Date: 20090212
  Receipt Date: 20090129
  Transmission Date: 20090719
  Serious: Yes (Hospitalization, Other)
  Sender: FDA-Public Use
  Company Number: 2009S1001820

PATIENT
  Age: 53 Year
  Sex: Female

DRUGS (8)
  1. FENTANYL TRANSDERMAL SYSTEM [Suspect]
     Indication: PAIN
     Dosage: 50 UG; EVERY HOUR; TRANSDERMAL
     Route: 062
     Dates: start: 20080601, end: 20081101
  2. FENTANYL TRANSDERMAL SYSTEM [Suspect]
     Indication: PAIN
     Dosage: 50 UG; EVERY HOUR; TRANSDERMAL
     Route: 062
     Dates: start: 20081101, end: 20090101
  3. FENTANYL TRANSDERMAL SYSTEM [Suspect]
     Indication: PAIN
     Dosage: 25 UG; EVERY HOUR; TRANSDERMAL
     Route: 062
     Dates: start: 20081101, end: 20081101
  4. FENTANYL TRANSDERMAL SYSTEM [Suspect]
     Indication: PAIN
     Dosage: 25 UG; EVERY HOUR; TRANSDERMAL
     Route: 062
     Dates: start: 20090101
  5. SOMA [Concomitant]
  6. AMITRIPTYLINE [Concomitant]
  7. LEXAPRO [Concomitant]
  8. XANAX [Concomitant]

REACTIONS (6)
  - AGITATION [None]
  - CONVULSION [None]
  - DRUG WITHDRAWAL SYNDROME [None]
  - INAPPROPRIATE SCHEDULE OF DRUG ADMINISTRATION [None]
  - LOSS OF CONSCIOUSNESS [None]
  - PRURITUS GENERALISED [None]
